FAERS Safety Report 18627958 (Version 1)
Quarter: 2020Q4

REPORT INFORMATION
  Report Type: Report from Study
  Country: FR (occurrence: FR)
  Receive Date: 20201217
  Receipt Date: 20201217
  Transmission Date: 20210114
  Serious: Yes (Death, Hospitalization)
  Sender: FDA-Public Use
  Company Number: FR-MYLANLABS-2020M1101835

PATIENT
  Age: 61 Year
  Sex: Female
  Weight: 65 kg

DRUGS (6)
  1. METHYLPREDNISOLONE. [Concomitant]
     Active Substance: METHYLPREDNISOLONE
     Dosage: 60 MILLIGRAM
     Dates: start: 20200115
  2. ATEZOLIZUMAB. [Suspect]
     Active Substance: ATEZOLIZUMAB
     Dosage: 840 MILLIGRAM, BIMONTHLY
     Route: 042
     Dates: start: 20200115
  3. PACLITAXEL. [Suspect]
     Active Substance: PACLITAXEL
     Indication: TRIPLE NEGATIVE BREAST CANCER
     Dosage: 90 MILLIGRAM/SQ. METER
     Route: 042
     Dates: start: 20191217
  4. PACLITAXEL. [Suspect]
     Active Substance: PACLITAXEL
     Dosage: 90 MILLIGRAM/SQ. METER
     Route: 042
     Dates: start: 20200115
  5. ATEZOLIZUMAB. [Suspect]
     Active Substance: ATEZOLIZUMAB
     Indication: TRIPLE NEGATIVE BREAST CANCER
     Dosage: 840 MILLIGRAM, BIMONTHLY (SUBSEQUENT ATEZOLIZUMAB INFUSION 31/DEC/2019)
     Route: 041
     Dates: start: 20191217
  6. METHYLPREDNISOLONE. [Concomitant]
     Active Substance: METHYLPREDNISOLONE
     Dosage: 60 MILLIGRAM
     Dates: start: 20191217

REACTIONS (2)
  - Death [Fatal]
  - Hypothyroidism [Recovering/Resolving]

NARRATIVE: CASE EVENT DATE: 20191222
